FAERS Safety Report 26205499 (Version 1)
Quarter: 2025Q4

REPORT INFORMATION
  Report Type: Spontaneous
  Country: CN (occurrence: CN)
  Receive Date: 20251228
  Receipt Date: 20251228
  Transmission Date: 20260117
  Serious: Yes (Hospitalization)
  Sender: COHERUS
  Company Number: CN-SHANGHAI JUNSHI BIOSCIENCES CO., LTD.-CN2025016938

PATIENT

DRUGS (3)
  1. TORIPALIMAB [Suspect]
     Active Substance: TORIPALIMAB
     Indication: Lung neoplasm malignant
     Dosage: 240 MG, SINGLE
     Route: 041
     Dates: start: 20251128, end: 20251128
  2. ETOPOSIDE [Concomitant]
     Active Substance: ETOPOSIDE
     Indication: Lung neoplasm malignant
     Dosage: 100 MG, QD
     Route: 041
     Dates: start: 20251128, end: 20251201
  3. CISPLATIN [Concomitant]
     Active Substance: CISPLATIN
     Indication: Lung neoplasm malignant
     Dosage: 20 MG, QD
     Route: 041
     Dates: start: 20251128, end: 20251202

REACTIONS (4)
  - Mouth ulceration [Unknown]
  - Blister [Unknown]
  - Rash [Unknown]
  - Myelosuppression [Unknown]

NARRATIVE: CASE EVENT DATE: 20251209
